FAERS Safety Report 10179733 (Version 1)
Quarter: 2014Q2

REPORT INFORMATION
  Report Type: Spontaneous
  Country: US (occurrence: US)
  Receive Date: 20140519
  Receipt Date: 20140519
  Transmission Date: 20141212
  Serious: Yes (Hospitalization)
  Sender: FDA-Public Use
  Company Number: US-TEVA-482073USA

PATIENT
  Age: 24 Year
  Sex: Female

DRUGS (2)
  1. COPAXONE [Suspect]
     Dates: start: 201305
  2. AVONEX [Concomitant]

REACTIONS (9)
  - Lethargy [Unknown]
  - Chills [Unknown]
  - Vomiting [Unknown]
  - Presyncope [Unknown]
  - Feeling hot [Unknown]
  - Injection site reaction [Unknown]
  - Injection site erythema [Unknown]
  - Injection site pruritus [Unknown]
  - Injection site scar [Unknown]
